FAERS Safety Report 12903429 (Version 2)
Quarter: 2016Q4

REPORT INFORMATION
  Report Type: Spontaneous
  Country: US (occurrence: US)
  Receive Date: 20161102
  Receipt Date: 20161219
  Transmission Date: 20170207
  Serious: Yes (Other)
  Sender: FDA-Public Use
  Company Number: US-BAYER-2016-207977

PATIENT
  Age: 26 Year
  Sex: Female
  Weight: 74.38 kg

DRUGS (3)
  1. MIRENA [Suspect]
     Active Substance: LEVONORGESTREL
     Indication: CONTRACEPTION
     Dosage: 20 MCG/24HR, CONT
     Route: 015
     Dates: start: 20150831, end: 20161013
  2. MIRENA [Suspect]
     Active Substance: LEVONORGESTREL
  3. IBUPROFEN. [Concomitant]
     Active Substance: IBUPROFEN

REACTIONS (5)
  - Coital bleeding [None]
  - Device expulsion [None]
  - Abdominal pain lower [None]
  - Genital haemorrhage [None]
  - Abdominal discomfort [None]
